FAERS Safety Report 6822308-2 (Version None)
Quarter: 2010Q3

REPORT INFORMATION
  Report Type: 
  Country: None (occurrence: None)
  Receive Date: 20100708
  Receipt Date: 20100607
  Transmission Date: 20110219
  Serious: No
  Sender: FDA-Public Use
  Company Number: US-BAYER-201016647BCC

PATIENT
  Age: 71 Year
  Sex: Female
  Weight: 100 kg

DRUGS (7)
  1. ALEVE (CAPLET) [Suspect]
     Indication: STRESS
     Dosage: TOTAL DAILY DOSE: 220 MG  UNIT DOSE: 220 MG
     Route: 048
     Dates: start: 20100501, end: 20100604
  2. ASPIRIN [Suspect]
     Indication: ISCHAEMIC HEART DISEASE PROPHYLAXIS
     Dosage: TOTAL DAILY DOSE: 650 MG  UNIT DOSE: 325 MG
     Route: 048
     Dates: start: 20100501, end: 20100604
  3. MELATONIN [Concomitant]
     Dosage: UNIT DOSE: 25 MG
     Route: 065
  4. GLUCOSAMINE [Concomitant]
     Route: 065
  5. SUPER GREEN POWDER [Concomitant]
     Route: 065
  6. COD LIVER OIL [Concomitant]
     Route: 065
  7. CENTRUM SILVER [Concomitant]
     Route: 065

REACTIONS (6)
  - AFFECT LABILITY [None]
  - CHEST DISCOMFORT [None]
  - CRYING [None]
  - DIZZINESS [None]
  - FEELING JITTERY [None]
  - OEDEMA PERIPHERAL [None]
